FAERS Safety Report 8965140 (Version 3)
Quarter: 2013Q3

REPORT INFORMATION
  Report Type: Report from Study
  Country: NL (occurrence: NL)
  Receive Date: 20121213
  Receipt Date: 20130719
  Transmission Date: 20140515
  Serious: Yes (Other)
  Sender: FDA-Public Use
  Company Number: NL-BRISTOL-MYERS SQUIBB COMPANY-17185067

PATIENT
  Age: 62 Year
  Sex: Male

DRUGS (12)
  1. SAXAGLIPTIN [Suspect]
     Indication: TYPE 2 DIABETES MELLITUS
     Dates: start: 20101015
  2. ASPIRIN [Concomitant]
  3. CITALOPRAM [Concomitant]
     Indication: DEPRESSION
     Route: 048
  4. NEXIUM [Concomitant]
     Indication: DYSPEPSIA
     Route: 048
  5. BUDESONIDE [Concomitant]
     Indication: ASTHMA
     Route: 055
  6. FORMOTEROL [Concomitant]
     Indication: ASTHMA
     Route: 055
  7. FOLIC ACID [Concomitant]
     Indication: PROPHYLAXIS
     Route: 048
  8. RIVOTRIL [Concomitant]
     Indication: DEPRESSION
     Route: 048
  9. ALFUZOSIN [Concomitant]
     Indication: BENIGN PROSTATIC HYPERPLASIA
     Route: 048
  10. LYRICA [Concomitant]
     Indication: SENSORY LOSS
     Route: 048
     Dates: start: 20110704
  11. CLINDAMYCIN [Concomitant]
     Indication: POSTOPERATIVE ABSCESS
     Route: 048
     Dates: start: 20120612
  12. COZAAR [Concomitant]

REACTIONS (1)
  - Angioedema [Recovering/Resolving]
